FAERS Safety Report 8885170 (Version 1)
Quarter: 2012Q4

REPORT INFORMATION
  Report Type: 
  Country: US (occurrence: US)
  Receive Date: 20121102
  Receipt Date: 20121102
  Transmission Date: 20130627
  Serious: No
  Sender: FDA-Public Use
  Company Number: US-PFIZER INC-2012271602

PATIENT
  Age: 71 Year
  Sex: Female
  Weight: 100 kg

DRUGS (6)
  1. LYRICA [Suspect]
     Indication: SHINGLES
     Dosage: UNK
  2. LYRICA [Suspect]
     Dosage: 50 mg, 2x/day
     Dates: start: 201210, end: 201210
  3. LISINOPRIL [Concomitant]
     Indication: BLOOD PRESSURE HIGH
     Dosage: UNK
  4. PRAVASTATIN [Concomitant]
     Indication: BLOOD CHOLESTEROL ABNORMAL
     Dosage: UNK
  5. JANUVIA [Concomitant]
     Indication: DIABETES
     Dosage: UNK
  6. ACTOS [Concomitant]
     Indication: DIABETES
     Dosage: UNK

REACTIONS (6)
  - Herpes zoster [Unknown]
  - Facial pain [Unknown]
  - Oral pain [Unknown]
  - Hypophagia [Unknown]
  - Dyskinesia [Unknown]
  - Mastication disorder [Unknown]
